FAERS Safety Report 15764998 (Version 2)
Quarter: 2019Q1

REPORT INFORMATION
  Report Type: Spontaneous
  Country: US (occurrence: US)
  Receive Date: 20181227
  Receipt Date: 20190102
  Transmission Date: 20190417
  Serious: Yes (Hospitalization, Other)
  Sender: FDA-Public Use
  Company Number: US-GBPHLPEH-2018-PEL-003377

PATIENT

DRUGS (2)
  1. GABLOFEN [Suspect]
     Active Substance: BACLOFEN
     Dosage: 50 ?G, BOLUS DOSE
     Route: 037
     Dates: start: 20180219
  2. GABLOFEN [Suspect]
     Active Substance: BACLOFEN
     Indication: PRODUCT USED FOR UNKNOWN INDICATION
     Dosage: 1385 ?G, QD
     Route: 037

REACTIONS (10)
  - Ileus [Not Recovered/Not Resolved]
  - Pruritus generalised [Recovering/Resolving]
  - Cardiac arrest [Recovering/Resolving]
  - Retching [Recovering/Resolving]
  - Inappropriate affect [Recovering/Resolving]
  - Agitation [Unknown]
  - Withdrawal syndrome [Recovering/Resolving]
  - Aspiration [Recovering/Resolving]
  - Pyrexia [Recovering/Resolving]
  - Hypertonia [Recovering/Resolving]

NARRATIVE: CASE EVENT DATE: 20180115
